FAERS Safety Report 24412624 (Version 6)
Quarter: 2025Q1

REPORT INFORMATION
  Report Type: Spontaneous
  Country: CZ (occurrence: CZ)
  Receive Date: 20241008
  Receipt Date: 20250103
  Transmission Date: 20250408
  Serious: Yes (Other)
  Sender: NOVARTIS
  Company Number: CZ-002147023-NVSC2024CZ196660

PATIENT
  Sex: Female

DRUGS (1)
  1. MAYZENT [Suspect]
     Active Substance: SIPONIMOD
     Indication: Multiple sclerosis
     Route: 065
     Dates: start: 20211102, end: 20241001

REACTIONS (3)
  - Basal cell carcinoma [Unknown]
  - Neoplasm malignant [Unknown]
  - Sweat gland tumour [Unknown]

NARRATIVE: CASE EVENT DATE: 20241001
